FAERS Safety Report 6715201-7 (Version None)
Quarter: 2010Q2

REPORT INFORMATION
  Report Type: 
  Country: None (occurrence: None)
  Receive Date: 20100507
  Receipt Date: 20100429
  Transmission Date: 20101027
  Serious: Yes (Other)
  Sender: FDA-Public Use
  Company Number: BR-ABBOTT-10P-020-0641826-00

PATIENT
  Sex: Female

DRUGS (3)
  1. VALPAKINE [Suspect]
     Indication: SUICIDE ATTEMPT
     Route: 048
     Dates: start: 20100424, end: 20100424
  2. DIAZEPAM [Concomitant]
     Indication: DRUG USE FOR UNKNOWN INDICATION
     Dates: start: 20080101
  3. STELAZINE [Concomitant]
     Indication: DRUG USE FOR UNKNOWN INDICATION
     Dates: start: 20080101

REACTIONS (3)
  - INTENTIONAL OVERDOSE [None]
  - SPEECH DISORDER [None]
  - SUICIDE ATTEMPT [None]
